FAERS Safety Report 17591307 (Version 1)
Quarter: 2020Q1

REPORT INFORMATION
  Report Type: Spontaneous
  Country: NG (occurrence: NG)
  Receive Date: 20200327
  Receipt Date: 20200327
  Transmission Date: 20200409
  Serious: Yes (Death, Other)
  Sender: FDA-Public Use
  Company Number: NG-PFIZER INC-2020128866

PATIENT
  Age: 41 Year
  Sex: Female
  Weight: 62.5 kg

DRUGS (3)
  1. VFEND [Suspect]
     Active Substance: VORICONAZOLE
     Indication: CELLULITIS
     Dosage: 300 MG, START DOSE
     Route: 042
     Dates: start: 20200321, end: 20200321
  2. VFEND [Suspect]
     Active Substance: VORICONAZOLE
     Dosage: 200 MG, UNK
     Route: 042
     Dates: start: 20200322, end: 20200322
  3. VFEND [Suspect]
     Active Substance: VORICONAZOLE
     Indication: CANDIDA INFECTION
     Dosage: 200 MG, AFTER 12HOURS ON DAY 1
     Route: 042
     Dates: start: 20200321, end: 20200321

REACTIONS (3)
  - Cardiac arrest [Fatal]
  - Product use issue [Unknown]
  - Off label use [Unknown]

NARRATIVE: CASE EVENT DATE: 20200322
